FAERS Safety Report 8023043-8 (Version None)
Quarter: 2012Q1

REPORT INFORMATION
  Report Type: 
  Country: None (occurrence: None)
  Receive Date: 20120104
  Receipt Date: 20111226
  Transmission Date: 20120608
  Serious: Yes (Other)
  Sender: FDA-Public Use
  Company Number: PT-ASTRAZENECA-2011SE78787

PATIENT
  Age: 57 Year
  Sex: Male
  Weight: 86 kg

DRUGS (1)
  1. ROPIVACAINE HYDROCHLORIDE [Suspect]
     Indication: LOCAL ANAESTHESIA
     Route: 053

REACTIONS (8)
  - AMAUROSIS [None]
  - MUSCLE TIGHTNESS [None]
  - AMPUTATION [None]
  - RESTLESSNESS [None]
  - AGGRESSION [None]
  - HYPERTENSIVE CRISIS [None]
  - HALLUCINATION, VISUAL [None]
  - SINUS TACHYCARDIA [None]
